FAERS Safety Report 9233630 (Version 1)
Quarter: 2013Q2

REPORT INFORMATION
  Report Type: Spontaneous
  Country: US (occurrence: US)
  Receive Date: 20130416
  Receipt Date: 20130416
  Transmission Date: 20140414
  Serious: No
  Sender: FDA-Public Use
  Company Number: US-BANPHARM-20130610

PATIENT
  Age: 90 Year
  Sex: Female
  Weight: 64.41 kg

DRUGS (3)
  1. ALEVE LIQUID GELS 220MG [Suspect]
     Dosage: 1 DF,
     Route: 048
     Dates: start: 201301, end: 20130126
  2. HIGH BLOOD PRESSURE MEDICATION [Concomitant]
  3. SOY PROTEIN POWDER [Concomitant]

REACTIONS (4)
  - Pollakiuria [Unknown]
  - Urinary incontinence [Unknown]
  - Drug effect decreased [Unknown]
  - Therapeutic response unexpected with drug substitution [Unknown]
